FAERS Safety Report 15267229 (Version 1)
Quarter: 2018Q3

REPORT INFORMATION
  Report Type: Spontaneous
  Country: DE (occurrence: DE)
  Receive Date: 20180810
  Receipt Date: 20180810
  Transmission Date: 20181010
  Serious: Yes (Congenital Anomaly)
  Sender: FDA-Public Use
  Company Number: DE-TEVA-2018-DE-937971

PATIENT
  Sex: Female

DRUGS (2)
  1. ERGENYL CHRONO [Suspect]
     Active Substance: VALPROIC ACID
     Route: 064
     Dates: start: 201311
  2. VALPROAT CHRONO [Suspect]
     Active Substance: VALPROATE SODIUM
     Route: 064
     Dates: start: 201311

REACTIONS (5)
  - Mental disability [Not Recovered/Not Resolved]
  - Foetal exposure during pregnancy [Unknown]
  - Sensory disturbance [Not Recovered/Not Resolved]
  - Muscle tone disorder [Not Recovered/Not Resolved]
  - Hypokinesia [Not Recovered/Not Resolved]
